FAERS Safety Report 6342183-2 (Version None)
Quarter: 2009Q3

REPORT INFORMATION
  Report Type: 
  Country: None (occurrence: None)
  Receive Date: 20090903
  Receipt Date: 20090903
  Transmission Date: 20100115
  Serious: Yes (Other)
  Sender: FDA-Public Use
  Company Number: None

PATIENT
  Sex: Female
  Weight: 63.5036 kg

DRUGS (1)
  1. SULFAMETHOXAZOLE TRIMETHOPRIM [Suspect]
     Indication: UPPER RESPIRATORY TRACT INFECTION
     Dosage: 800-160 Q.D. PO
     Route: 048
     Dates: start: 20090401

REACTIONS (2)
  - PHLEBITIS [None]
  - VEIN DISORDER [None]
